FAERS Safety Report 19495599 (Version 1)
Quarter: 2021Q3

REPORT INFORMATION
  Report Type: Spontaneous
  Country: GB (occurrence: GB)
  Receive Date: 20210706
  Receipt Date: 20210706
  Transmission Date: 20211014
  Serious: Yes (Other)
  Sender: FDA-Public Use
  Company Number: GB-TEVA-2021-GB-1929131

PATIENT
  Age: 30 Year
  Sex: Female
  Weight: 68 kg

DRUGS (2)
  1. CERAZETTE [Concomitant]
     Indication: ENDOMETRITIS
     Dates: start: 20180101
  2. PROGESTERONE. [Suspect]
     Active Substance: PROGESTERONE
     Route: 065

REACTIONS (6)
  - Nausea [Recovering/Resolving]
  - Heavy menstrual bleeding [Recovering/Resolving]
  - Dizziness [Recovered/Resolved]
  - Vaginal haemorrhage [Recovering/Resolving]
  - Abdominal pain [Recovering/Resolving]
  - Endometriosis [Recovering/Resolving]

NARRATIVE: CASE EVENT DATE: 20210612
